FAERS Safety Report 5870798-4 (Version None)
Quarter: 2008Q3

REPORT INFORMATION
  Report Type: 
  Country: None (occurrence: None)
  Receive Date: 20080904
  Receipt Date: 20080828
  Transmission Date: 20090109
  Serious: Yes (Hospitalization)
  Sender: FDA-Public Use
  Company Number: US-JNJFOC-20080900265

PATIENT
  Sex: Male

DRUGS (2)
  1. NATRECOR [Suspect]
     Indication: CARDIAC FAILURE
     Route: 042
  2. BUMEX [Suspect]
     Indication: DRUG USE FOR UNKNOWN INDICATION
     Route: 065

REACTIONS (2)
  - HYPERSENSITIVITY [None]
  - VASCULITIS [None]
